FAERS Safety Report 7449642-X (Version None)
Quarter: 2011Q2

REPORT INFORMATION
  Report Type: 
  Country: None (occurrence: None)
  Receive Date: 20110420
  Receipt Date: 20110407
  Transmission Date: 20111010
  Serious: Yes (Hospitalization)
  Sender: FDA-Public Use
  Company Number: 2011MA003546

PATIENT
  Age: 48 Year
  Sex: Female

DRUGS (3)
  1. CARBAMAZEPINE [Concomitant]
  2. LEVOTHYROXINE SODIUM [Concomitant]
  3. PHENYTOIN [Suspect]
     Indication: EPILEPSY
     Dosage: 400 MG; OD

REACTIONS (9)
  - DYSARTHRIA [None]
  - THYROID DISORDER [None]
  - CEREBELLAR SYNDROME [None]
  - DIPLOPIA [None]
  - COORDINATION ABNORMAL [None]
  - TOXICITY TO VARIOUS AGENTS [None]
  - NYSTAGMUS [None]
  - ATAXIA [None]
  - ANTICONVULSANT DRUG LEVEL INCREASED [None]
